FAERS Safety Report 5281400-7 (Version None)
Quarter: 2007Q1

REPORT INFORMATION
  Report Type: 
  Country: None (occurrence: None)
  Receive Date: 20070330
  Receipt Date: 20070319
  Transmission Date: 20070707
  Serious: Yes (Other)
  Sender: FDA-Public Use
  Company Number: PHBS2007JP03367

PATIENT
  Age: 55 Year

DRUGS (11)
  1. TEGRETOL [Suspect]
     Indication: HYPOAESTHESIA
     Dosage: 1200 MG/DAY
     Route: 048
  2. BASEN [Concomitant]
     Dosage: 0.6 DF/DAY
     Route: 048
  3. LANDSEN [Concomitant]
     Dosage: 3 DF/DAY
     Route: 048
  4. EUGLUCON [Concomitant]
     Dosage: 5 DF/DAY
     Route: 048
  5. RENIVACE [Concomitant]
     Dosage: 5 DF/DAY
     Route: 048
  6. RETICOLAN [Concomitant]
     Dosage: 1500 DF/DAY
     Route: 048
  7. URSO [Concomitant]
     Dosage: 300 DF/DAY
     Route: 048
  8. JUVELA [Concomitant]
     Dosage: 300 DF/DAY
     Route: 048
  9. MYSLEE [Concomitant]
     Dosage: 10 DF/DAY
     Route: 048
  10. ROHYPNOL [Concomitant]
     Dosage: 1 DF/DAY
     Route: 048
  11. TAKEPRON [Concomitant]
     Dosage: 30 DF/DAY
     Route: 048

REACTIONS (10)
  - CEREBELLAR INFARCTION [None]
  - DIZZINESS POSTURAL [None]
  - DRUG LEVEL INCREASED [None]
  - FALL [None]
  - GAIT DISTURBANCE [None]
  - HYPOREFLEXIA [None]
  - INCOHERENT [None]
  - MUSCULAR WEAKNESS [None]
  - SPEECH DISORDER [None]
  - TRANSIENT ISCHAEMIC ATTACK [None]
